FAERS Safety Report 5655881-0 (Version None)
Quarter: 2008Q1

REPORT INFORMATION
  Report Type: 
  Country: None (occurrence: None)
  Receive Date: 20080307
  Receipt Date: 20071113
  Transmission Date: 20080703
  Serious: Yes (Other)
  Sender: FDA-Public Use
  Company Number: JP-PFIZER INC-2008017789

PATIENT
  Age: 56 Year
  Sex: Female

DRUGS (7)
  1. PREDNISOLONE [Suspect]
     Indication: DERMATOMYOSITIS
     Dosage: DAILY DOSE:60MG-FREQ:ONCE, STARTING DOSE
  2. PREDNISOLONE [Suspect]
     Dosage: DAILY DOSE:50MG-FREQ:DAILY
  3. PREDNISOLONE [Suspect]
     Dosage: DAILY DOSE:45MG-FREQ:DAILY
  4. PREDNISOLONE [Suspect]
     Dosage: DAILY DOSE:40MG-FREQ:DAILY
  5. PREDNISOLONE [Suspect]
     Dosage: DAILY DOSE:10MG-FREQ:DAILY
  6. METHYLPREDNISOLONE 16MG TAB [Suspect]
     Indication: DERMATOMYOSITIS
  7. CYCLOSPORINE [Suspect]
     Indication: DERMATOMYOSITIS

REACTIONS (4)
  - ASPERGILLOSIS [None]
  - BREAST CANCER [None]
  - EYE INFECTION FUNGAL [None]
  - NOCARDIOSIS [None]
